FAERS Safety Report 23442554 (Version 1)
Quarter: 2024Q1

REPORT INFORMATION
  Report Type: Spontaneous
  Country: US (occurrence: None)
  Receive Date: 20240124
  Receipt Date: 20240124
  Transmission Date: 20240409
  Serious: Yes (Hospitalization)
  Sender: FDA-Public Use
  Company Number: None

PATIENT
  Sex: Male

DRUGS (1)
  1. MAVYRET [Suspect]
     Active Substance: GLECAPREVIR\PIBRENTASVIR
     Indication: Hepatitis viral
     Dosage: OTHER QUANTITY : 100-40 MG;?FREQUENCY : DAILY;?
     Route: 048
     Dates: start: 20231228

REACTIONS (2)
  - Increased appetite [None]
  - Therapy interrupted [None]
